FAERS Safety Report 10258497 (Version 2)
Quarter: 2014Q3

REPORT INFORMATION
  Report Type: Spontaneous
  Country: US (occurrence: None)
  Receive Date: 20140623
  Receipt Date: 20140825
  Transmission Date: 20150326
  Serious: Yes (Hospitalization)
  Sender: FDA-Public Use
  Company Number: UNT-2014-001568

PATIENT
  Age: 66 Year
  Sex: Female
  Weight: 67.1 kg

DRUGS (2)
  1. LETAIRIS [Concomitant]
     Active Substance: AMBRISENTAN
  2. REMODULIN [Suspect]
     Active Substance: TREPROSTINIL
     Indication: COR PULMONALE CHRONIC
     Dosage: CONTINUING
     Route: 058
     Dates: start: 20131209

REACTIONS (10)
  - Diarrhoea [None]
  - Presyncope [None]
  - Cardiac failure [None]
  - Fluid retention [None]
  - Dizziness [None]
  - Device computer issue [None]
  - Incorrect drug administration rate [None]
  - Medication error [None]
  - Nausea [None]
  - Dyspnoea [None]

NARRATIVE: CASE EVENT DATE: 201405
